FAERS Safety Report 20066610 (Version 1)
Quarter: 2021Q4

REPORT INFORMATION
  Report Type: Spontaneous
  Country: US (occurrence: US)
  Receive Date: 20211115
  Receipt Date: 20211115
  Transmission Date: 20220303
  Serious: Yes (Hospitalization)
  Sender: FDA-Public Use
  Company Number: US-JNJFOC-20211108799

PATIENT
  Age: 25 Year
  Sex: Female
  Weight: 67 kg

DRUGS (2)
  1. ACETAMINOPHEN [Suspect]
     Active Substance: ACETAMINOPHEN
     Indication: Suicide attempt
     Dosage: TOTAL SINGLE DOSE 30000 MG OF ACETAMINOPHEN TAKEN ONCE ON 31-MAY-2003 AT 16:00
     Route: 048
     Dates: start: 20030531, end: 20030531
  2. NAPROSYN [Suspect]
     Active Substance: NAPROXEN
     Indication: Suicide attempt
     Dosage: 10 TABLETS ONCE ON 31-MAY-2003
     Route: 065
     Dates: start: 20030531, end: 20030531

REACTIONS (5)
  - Suicide attempt [Recovered/Resolved]
  - Escherichia infection [Recovered/Resolved]
  - Acute hepatic failure [Recovered/Resolved]
  - Acute kidney injury [Recovered/Resolved]
  - Intentional overdose [Recovered/Resolved]
